FAERS Safety Report 7657246-9 (Version None)
Quarter: 2011Q3

REPORT INFORMATION
  Report Type: 
  Country: None (occurrence: None)
  Receive Date: 20110804
  Receipt Date: 20110721
  Transmission Date: 20111222
  Serious: Yes (Hospitalization)
  Sender: FDA-Public Use
  Company Number: PHHY2011US66139

PATIENT
  Sex: Female

DRUGS (6)
  1. DIOVAN [Suspect]
     Dosage: 160 MG, QD
  2. CHOLESTEROL [Concomitant]
     Dosage: UNK UKN, UNK
  3. CRESTOR [Concomitant]
     Dosage: UNK UKN, UNK
  4. BLOOD THINNERS [Concomitant]
     Dosage: UNK UKN, UNK
  5. DIABETIC MEDICATIONS [Concomitant]
     Dosage: UNK UKN, UNK
  6. DABIGATRAN [Concomitant]
     Dosage: UNK UKN, UNK

REACTIONS (2)
  - ATRIAL FIBRILLATION [None]
  - LOSS OF CONSCIOUSNESS [None]
